FAERS Safety Report 20554797 (Version 1)
Quarter: 2022Q1

REPORT INFORMATION
  Report Type: Spontaneous
  Country: US (occurrence: None)
  Receive Date: 20220304
  Receipt Date: 20220304
  Transmission Date: 20220423
  Serious: Yes (Life-Threatening)
  Sender: FDA-Public Use
  Company Number: None

PATIENT
  Sex: Female

DRUGS (1)
  1. DROPERIDOL [Suspect]
     Active Substance: DROPERIDOL
     Indication: Product prescribing issue

REACTIONS (4)
  - Abnormal behaviour [None]
  - Dyspnoea [None]
  - Feeling hot [None]
  - Product use issue [None]

NARRATIVE: CASE EVENT DATE: 20211102
